FAERS Safety Report 20681468 (Version 1)
Quarter: 2022Q2

REPORT INFORMATION
  Report Type: Spontaneous
  Country: CA (occurrence: CA)
  Receive Date: 20220406
  Receipt Date: 20220406
  Transmission Date: 20220721
  Serious: Yes (Other)
  Sender: FDA-Public Use
  Company Number: CA-SA-SAC20220405001139

PATIENT
  Age: 60 Year
  Sex: Male

DRUGS (1)
  1. ZANTAC [Suspect]
     Active Substance: RANITIDINE HYDROCHLORIDE
     Indication: Product used for unknown indication
     Dosage: UNK
     Dates: start: 1999, end: 2019

REACTIONS (4)
  - Colon cancer [Unknown]
  - Loss of personal independence in daily activities [Unknown]
  - Pain [Unknown]
  - Impaired work ability [Unknown]

NARRATIVE: CASE EVENT DATE: 20090224
